FAERS Safety Report 21062587 (Version 2)
Quarter: 2022Q3

REPORT INFORMATION
  Report Type: Spontaneous
  Country: JP (occurrence: JP)
  Receive Date: 20220711
  Receipt Date: 20220715
  Transmission Date: 20221027
  Serious: Yes (Hospitalization)
  Sender: FDA-Public Use
  Company Number: JP-JNJFOC-20220718657

PATIENT

DRUGS (2)
  1. FENTANYL [Suspect]
     Active Substance: FENTANYL
     Indication: Product used for unknown indication
     Dosage: 2.1MG
     Route: 062
  2. FENTANYL [Suspect]
     Active Substance: FENTANYL
     Dosage: FENTANYL (MATRIX PATCH) 100MCG/HR
     Route: 062

REACTIONS (1)
  - Hospitalisation [Unknown]
